FAERS Safety Report 4461111-8 (Version None)
Quarter: 2004Q3

REPORT INFORMATION
  Report Type: 
  Country: None (occurrence: None)
  Receive Date: 20040923
  Receipt Date: 20040913
  Transmission Date: 20050211
  Serious: Yes (Hospitalization)
  Sender: FDA-Public Use
  Company Number: US-SHR-03-009908

PATIENT
  Age: 50 Year
  Sex: Female
  Weight: 54.4 kg

DRUGS (13)
  1. BETASERON [Suspect]
     Indication: MULTIPLE SCLEROSIS
     Dosage: 8 MIU, EVERY 2 D, SUBCUTANEOUS
     Route: 058
     Dates: start: 19940801
  2. NEURONTIN [Concomitant]
  3. DEPAKOTE [Concomitant]
  4. ENALAPRIL MALEATE [Concomitant]
  5. PERCOCET [Concomitant]
  6. AMBIEN [Concomitant]
  7. LEVODOPA (LEVODOPA) [Concomitant]
  8. PROVIGIL [Concomitant]
  9. MARIJUANA (CANNABIS) [Concomitant]
  10. BACLOFEN [Concomitant]
  11. IBUPROFEN [Concomitant]
  12. MULTIVITAMIN [Concomitant]
  13. MINERALS NOS (MINERALS NOS) [Concomitant]

REACTIONS (1)
  - BREAST CANCER FEMALE [None]
